FAERS Safety Report 6378112-5 (Version None)
Quarter: 2009Q3

REPORT INFORMATION
  Report Type: 
  Country: None (occurrence: None)
  Receive Date: 20090925
  Receipt Date: 20090915
  Transmission Date: 20100115
  Serious: Yes (Hospitalization)
  Sender: FDA-Public Use
  Company Number: JP-MERCK-0909USA01058

PATIENT
  Age: 79 Year
  Sex: Female

DRUGS (8)
  1. FOSAMAX [Suspect]
     Indication: OSTEOPOROSIS
     Route: 048
     Dates: start: 20090704, end: 20090805
  2. PEPCID [Concomitant]
     Route: 048
     Dates: start: 20090704, end: 20090805
  3. WARKMIN [Concomitant]
     Indication: OSTEOPOROSIS
     Route: 048
     Dates: start: 20090704, end: 20090805
  4. ARICEPT [Concomitant]
     Route: 048
  5. LASIX [Concomitant]
     Route: 048
  6. PREMINENT [Concomitant]
     Route: 048
  7. CALBLOCK [Concomitant]
     Route: 048
  8. CRESTOR [Concomitant]
     Route: 048

REACTIONS (2)
  - DYSPNOEA [None]
  - PNEUMONIA [None]
